FAERS Safety Report 7673337-0 (Version None)
Quarter: 2011Q3

REPORT INFORMATION
  Report Type: 
  Country: None (occurrence: None)
  Receive Date: 20110810
  Receipt Date: 20110726
  Transmission Date: 20111222
  Serious: Yes (Death, Hospitalization)
  Sender: FDA-Public Use
  Company Number: IT-JNJFOC-20110803873

PATIENT
  Sex: Female

DRUGS (2)
  1. DOXORUBICIN HYDROCHLORIDE [Suspect]
     Indication: OVARIAN EPITHELIAL CANCER
     Dosage: 15 MG/L OF PERFUSATE FOR 90 MIN, PERFUSATE VOLUME WAS 4-6 L AND AVERAGE FLOW WAS 700 ML/MIN
     Route: 042
  2. CISPLATIN [Suspect]
     Indication: OVARIAN EPITHELIAL CANCER
     Dosage: 40 MG/L OF PERFUSATE FOR 90 MIN, PERFUSATE VOLUME WAS 4-6 L AND AVERAGE FLOW WAS 700 ML/MIN
     Route: 065

REACTIONS (4)
  - PLEURAL EFFUSION [None]
  - ABDOMINAL ABSCESS [None]
  - SEPSIS [None]
  - HAEMATOTOXICITY [None]
